FAERS Safety Report 4282521-8 (Version None)
Quarter: 2004Q1

REPORT INFORMATION
  Report Type: 
  Country: None (occurrence: None)
  Receive Date: 20040129
  Receipt Date: 20040121
  Transmission Date: 20041129
  Serious: Yes (Death)
  Sender: FDA-Public Use
  Company Number: 2004IC000012

PATIENT
  Age: 68 Year
  Sex: 0

DRUGS (2)
  1. LIBRIUM [Suspect]
     Dosage: ORAL
     Route: 048
  2. DOXEPIN HCL [Suspect]
     Dosage: ORAL
     Route: 048

REACTIONS (2)
  - COMPLETED SUICIDE [None]
  - MULTIPLE DRUG OVERDOSE [None]
